FAERS Safety Report 6222748-9 (Version None)
Quarter: 2009Q2

REPORT INFORMATION
  Report Type: 
  Country: None (occurrence: None)
  Receive Date: 20090611
  Receipt Date: 20090608
  Transmission Date: 20091009
  Serious: Yes (Death)
  Sender: FDA-Public Use
  Company Number: A0774612A

PATIENT
  Age: 74 Year
  Sex: Female

DRUGS (16)
  1. PROMACTA [Suspect]
     Indication: IDIOPATHIC THROMBOCYTOPENIC PURPURA
     Dosage: 50MG PER DAY
     Route: 048
     Dates: start: 20090309, end: 20090319
  2. PREDNISONE [Concomitant]
  3. AMYCOR [Concomitant]
  4. ACYCLOVIR [Concomitant]
  5. NEXIUM [Concomitant]
  6. SINGULAIR [Concomitant]
  7. ZYRTEC [Concomitant]
  8. LOPRESSOR [Concomitant]
  9. IMDUR [Concomitant]
  10. NORVASC [Concomitant]
  11. LASIX [Concomitant]
  12. OXYCODONE [Concomitant]
  13. ARANESP [Concomitant]
  14. SANDOSTATIN [Concomitant]
  15. ROMIPLOSTIM [Concomitant]
  16. CELEBREX [Concomitant]

REACTIONS (7)
  - DEATH [None]
  - EPISTAXIS [None]
  - FATIGUE [None]
  - HAEMOGLOBIN DECREASED [None]
  - PLATELET COUNT DECREASED [None]
  - TONGUE ULCERATION [None]
  - TRANSFUSION [None]
